FAERS Safety Report 8183819-3 (Version None)
Quarter: 2012Q1

REPORT INFORMATION
  Report Type: 
  Country: None (occurrence: None)
  Receive Date: 20120305
  Receipt Date: 20120229
  Transmission Date: 20120608
  Serious: Yes (Disabling, Other)
  Sender: FDA-Public Use
  Company Number: US-PFIZER INC-2009277189

PATIENT
  Sex: Female
  Weight: 77.1 kg

DRUGS (8)
  1. LYRICA [Suspect]
     Dosage: 300 MG, DAILY
     Route: 048
  2. ISOSORBIDE [Concomitant]
     Indication: CARDIAC DISORDER
     Dosage: UNK
  3. DIOVAN [Concomitant]
     Indication: HYPERTENSION
     Dosage: UNK
  4. NEURONTIN [Suspect]
     Indication: NEUROPATHY PERIPHERAL
     Dosage: UNK
  5. TRAMADOL [Concomitant]
     Dosage: UNK
  6. NEURONTIN [Suspect]
  7. LYRICA [Suspect]
     Indication: NEUROPATHY PERIPHERAL
     Dosage: 50 MG, 2X/DAY
     Route: 048
  8. LYRICA [Suspect]
     Dosage: UNK
     Route: 048
     Dates: end: 20120201

REACTIONS (8)
  - BLINDNESS [None]
  - CATARACT [None]
  - NEUROPATHY PERIPHERAL [None]
  - HYPERSENSITIVITY [None]
  - RASH [None]
  - OPTIC NERVE DISORDER [None]
  - MEMORY IMPAIRMENT [None]
  - DRUG INTOLERANCE [None]
